FAERS Safety Report 9313580 (Version 1)
Quarter: 2013Q2

REPORT INFORMATION
  Report Type: Spontaneous
  Country: US (occurrence: US)
  Receive Date: 20130528
  Receipt Date: 20130528
  Transmission Date: 20140414
  Serious: No
  Sender: FDA-Public Use
  Company Number: US-ASTRAZENECA-2013SE34190

PATIENT
  Age: 65 Year
  Sex: Female

DRUGS (5)
  1. LISINOPRIL [Suspect]
     Route: 048
  2. NORVASC [Suspect]
     Route: 065
  3. BEMECOR [Concomitant]
  4. DIOVAN HCT [Concomitant]
  5. DIOVAN [Concomitant]

REACTIONS (3)
  - Labile blood pressure [Unknown]
  - Palpitations [Unknown]
  - Headache [Unknown]
